FAERS Safety Report 6468203-2 (Version None)
Quarter: 2009Q4

REPORT INFORMATION
  Report Type: 
  Country: None (occurrence: None)
  Receive Date: 20091130
  Receipt Date: 20091109
  Transmission Date: 20100525
  Serious: Yes (Other)
  Sender: FDA-Public Use
  Company Number: TRP_06571_2009

PATIENT
  Sex: Female

DRUGS (2)
  1. RIBAVARIN [Suspect]
     Indication: DRUG USE FOR UNKNOWN INDICATION
     Dosage: (DF)
     Route: 065
  2. PEGASYS [Suspect]
     Dosage: UNKNOWN INDICATION (DF)
     Route: 065

REACTIONS (7)
  - ARTHRALGIA [None]
  - CHEST PAIN [None]
  - DYSPNOEA EXERTIONAL [None]
  - FATIGUE [None]
  - HEADACHE [None]
  - PAIN [None]
  - WHITE BLOOD CELL COUNT DECREASED [None]
